FAERS Safety Report 16929018 (Version 1)
Quarter: 2019Q4

REPORT INFORMATION
  Report Type: Spontaneous
  Country: US (occurrence: US)
  Receive Date: 20190826
  Receipt Date: 20190826
  Transmission Date: 20200122
  Serious: No
  Sender: FDA-Public Use
  Company Number: None

PATIENT
  Age: 53 Year

DRUGS (1)
  1. EPCLUSA [Suspect]
     Active Substance: SOFOSBUVIR\VELPATASVIR
     Dosage: ?          OTHER DOSE:100/400 MG/MG;?
     Route: 048

REACTIONS (2)
  - Pulmonary congestion [None]
  - Cough [None]

NARRATIVE: CASE EVENT DATE: 20190826
